FAERS Safety Report 10755021 (Version 2)
Quarter: 2015Q1

REPORT INFORMATION
  Report Type: Spontaneous
  Country: US (occurrence: US)
  Receive Date: 20150202
  Receipt Date: 20150204
  Transmission Date: 20150721
  Serious: Yes (Other)
  Sender: FDA-Public Use
  Company Number: US-RB-072546-15

PATIENT
  Age: 33 Year
  Sex: Female

DRUGS (3)
  1. DELSYM [Suspect]
     Active Substance: DEXTROMETHORPHAN
     Indication: COUGH
     Dosage: TOOK ONLY 1 DOSE (TOTAL) OF 10ML (ON 14-JAN-2015)
     Route: 065
     Dates: start: 20150114
  2. SYNTHROID [Concomitant]
     Active Substance: LEVOTHYROXINE SODIUM
     Indication: PRODUCT USED FOR UNKNOWN INDICATION
     Dosage: ROUTINELY TAKES THE GENERIC VERSION OF SYNTHROID
     Route: 065
  3. DELSYM [Suspect]
     Active Substance: DEXTROMETHORPHAN
     Indication: NASOPHARYNGITIS
     Dosage: TOOK ONLY 1 DOSE (TOTAL) OF 10ML (ON 14-JAN-2015)
     Route: 065
     Dates: start: 20150114

REACTIONS (8)
  - Insomnia [Recovered/Resolved]
  - Fatigue [Unknown]
  - Decreased appetite [Recovering/Resolving]
  - Dizziness [Unknown]
  - Anxiety [Recovering/Resolving]
  - Feeling abnormal [Unknown]
  - Disorientation [Unknown]
  - Nausea [Unknown]

NARRATIVE: CASE EVENT DATE: 201501
